FAERS Safety Report 24109956 (Version 1)
Quarter: 2024Q3

REPORT INFORMATION
  Report Type: Spontaneous
  Country: US (occurrence: None)
  Receive Date: 20240717
  Receipt Date: 20240717
  Transmission Date: 20241016
  Serious: Yes (Death)
  Sender: Public
  Company Number: None

PATIENT
  Sex: Male

DRUGS (11)
  1. REBLOZYL [Suspect]
     Active Substance: LUSPATERCEPT-AAMT
     Indication: Chronic kidney disease
     Dosage: FREQ: INJECT 175 MG UNDER THE SKIN (SUBCUTANEOUS INJECTION) EVERY 21 DAYS
     Route: 058
     Dates: start: 20201112
  2. ALDACTONE [Concomitant]
     Active Substance: SPIRONOLACTONE
  3. CALCIUM [Concomitant]
     Active Substance: CALCIUM
  4. CLOPIDOGREL [Concomitant]
     Active Substance: CLOPIDOGREL BISULFATE
  5. COLCHICINE [Concomitant]
     Active Substance: COLCHICINE
  6. FOLIC ACID [Concomitant]
     Active Substance: FOLIC ACID
  7. FUROSEMIDE [Concomitant]
     Active Substance: FUROSEMIDE
  8. GABAPENTIN [Concomitant]
     Active Substance: GABAPENTIN
  9. LASIX [Concomitant]
     Active Substance: FUROSEMIDE
  10. MIDODRINE [Concomitant]
     Active Substance: MIDODRINE
  11. MULTIPLE VIT [Concomitant]

REACTIONS (1)
  - Death [None]
